FAERS Safety Report 5044799-2 (Version None)
Quarter: 2006Q2

REPORT INFORMATION
  Report Type: 
  Country: None (occurrence: None)
  Receive Date: 20060601
  Receipt Date: 20060301
  Transmission Date: 20061013
  Serious: No
  Sender: FDA-Public Use
  Company Number: 2006-BP-02352BP

PATIENT

DRUGS (1)
  1. SPIRIVA [Suspect]
     Dosage: NR (18 MCG) IH
     Route: 055

REACTIONS (3)
  - DRY MOUTH [None]
  - DRY THROAT [None]
  - DYSPHAGIA [None]
